FAERS Safety Report 9583914 (Version 1)
Quarter: 2013Q4

REPORT INFORMATION
  Report Type: Spontaneous
  Country: US (occurrence: US)
  Receive Date: 20131002
  Receipt Date: 20131002
  Transmission Date: 20140711
  Serious: No
  Sender: FDA-Public Use
  Company Number: US-AMGEN-USASP2013049822

PATIENT
  Age: 8 Year
  Sex: Female

DRUGS (5)
  1. ENBREL [Suspect]
     Indication: PRODUCT USED FOR UNKNOWN INDICATION
     Dosage: 25 MG, EVERY FIVE DAYS
     Route: 058
  2. FOLIC ACID [Concomitant]
     Dosage: 20 MG, UNK
  3. LEVSIN [Concomitant]
     Dosage: 0.5 MG/ML, UNK
  4. CELEBREX [Concomitant]
     Dosage: 100 MG, UNK
  5. MULTIVITAMINS, PLAIN [Concomitant]
     Dosage: UNK, CHW, CHILDS

REACTIONS (4)
  - Injection site pruritus [Unknown]
  - Injection site erythema [Unknown]
  - Injection site urticaria [Unknown]
  - Injection site swelling [Unknown]
